FAERS Safety Report 17215037 (Version 1)
Quarter: 2019Q4

REPORT INFORMATION
  Report Type: Spontaneous
  Country: US (occurrence: US)
  Receive Date: 20191206
  Receipt Date: 20191206
  Transmission Date: 20200122
  Serious: Yes (Hospitalization)
  Sender: FDA-Public Use
  Company Number: None

PATIENT
  Sex: Male
  Weight: 80.3 kg

DRUGS (1)
  1. CISPLATIN. [Suspect]
     Active Substance: CISPLATIN
     Indication: UPPER GASTROINTESTINAL HAEMORRHAGE

REACTIONS (3)
  - Diarrhoea [None]
  - Hypophagia [None]
  - Haematemesis [None]

NARRATIVE: CASE EVENT DATE: 20191118
